FAERS Safety Report 5233952-0 (Version None)
Quarter: 2007Q1

REPORT INFORMATION
  Report Type: 
  Country: None (occurrence: None)
  Receive Date: 20070208
  Receipt Date: 20070129
  Transmission Date: 20070707
  Serious: Yes (Death, Hospitalization)
  Sender: FDA-Public Use
  Company Number: US-PFIZER INC-2005103178

PATIENT
  Sex: Male

DRUGS (7)
  1. NEURONTIN [Suspect]
     Indication: MIGRAINE
  2. PROZAC [Concomitant]
  3. DEPAKOTE [Concomitant]
  4. KLONOPIN [Concomitant]
  5. CELEXA [Concomitant]
  6. VICODIN [Concomitant]
  7. CELEBREX [Concomitant]

REACTIONS (5)
  - ANXIETY [None]
  - COMPLETED SUICIDE [None]
  - DEPRESSION [None]
  - DRUG INEFFECTIVE [None]
  - INJURY ASPHYXIATION [None]
